FAERS Safety Report 5207934-9 (Version None)
Quarter: 2007Q1

REPORT INFORMATION
  Report Type: 
  Country: None (occurrence: None)
  Receive Date: 20070115
  Receipt Date: 20070108
  Transmission Date: 20070707
  Serious: Yes (Death, Hospitalization)
  Sender: FDA-Public Use
  Company Number: PHBS2007ES00667

PATIENT
  Age: 58 Year
  Sex: Female

DRUGS (4)
  1. VALSARTAN [Suspect]
     Indication: HYPERTENSION
  2. ANASTROZOLE [Suspect]
     Dosage: 1 MG/DAY
     Dates: start: 20051201
  3. DOXORUBICIN HCL [Concomitant]
     Indication: BREAST CANCER
     Dosage: 6 CYCLES
     Dates: start: 20050801, end: 20051101
  4. CYCLOPHOSPHAMIDE [Concomitant]
     Dosage: 6 CYCLES
     Dates: start: 20050801, end: 20051101

REACTIONS (20)
  - ACUTE ABDOMEN [None]
  - ALANINE AMINOTRANSFERASE INCREASED [None]
  - ASTHENIA [None]
  - BILIRUBIN CONJUGATED INCREASED [None]
  - BLOOD ALKALINE PHOSPHATASE INCREASED [None]
  - BLOOD BILIRUBIN INCREASED [None]
  - BLOOD LACTATE DEHYDROGENASE INCREASED [None]
  - CHOLESTASIS [None]
  - DUODENAL ULCER [None]
  - DYSPNOEA [None]
  - GAMMA-GLUTAMYLTRANSFERASE INCREASED [None]
  - GASTRECTOMY [None]
  - HEPATIC NECROSIS [None]
  - HEPATIC STEATOSIS [None]
  - JAUNDICE [None]
  - PLEURAL EFFUSION [None]
  - PNEUMOPERITONEUM [None]
  - PROTHROMBIN TIME PROLONGED [None]
  - SEPTIC SHOCK [None]
  - THROMBOCYTOPENIA [None]
